FAERS Safety Report 21290427 (Version 1)
Quarter: 2022Q3

REPORT INFORMATION
  Report Type: Report from Study
  Country: SE (occurrence: SE)
  Receive Date: 20220902
  Receipt Date: 20220902
  Transmission Date: 20221026
  Serious: Yes (Other)
  Sender: FDA-Public Use
  Company Number: SE-SA-2022SA340299

PATIENT
  Age: 26 Year
  Sex: Female

DRUGS (3)
  1. HYDROXYUREA [Suspect]
     Active Substance: HYDROXYUREA
     Indication: Acute myeloid leukaemia
     Dosage: HYDROXYUREA 500 MG BID GIVEN 1 HOUR PRIOR TO THE START OF THE FIRST CYTARABINE INFUSION ON DAY 1-5
     Route: 065
  2. DAUNORUBICIN [Suspect]
     Active Substance: DAUNORUBICIN
     Indication: Acute myeloid leukaemia
     Dosage: 60 MG/M2/8H, QD, 1-3 DURING CYCLES 1 AND 2, AND ON DAY 1-2 DURING CYCLE 3
  3. CYTARABINE [Suspect]
     Active Substance: CYTARABINE
     Indication: Acute myeloid leukaemia
     Dosage: 2 TO 4 CYCLES CYTARABINE INFUSION 1 G/M2/2 H I.V. B.I.D. ON DAY 1-5 DURING ALL 4 CYCLES

REACTIONS (2)
  - Febrile neutropenia [Recovered/Resolved]
  - Intentional product use issue [Unknown]
